FAERS Safety Report 23219261 (Version 2)
Quarter: 2023Q4

REPORT INFORMATION
  Report Type: Report from Study
  Country: US (occurrence: US)
  Receive Date: 20231122
  Receipt Date: 20231128
  Transmission Date: 20240109
  Serious: Yes (Other)
  Sender: FDA-Public Use
  Company Number: US-ABBVIE-5498933

PATIENT
  Sex: Female

DRUGS (1)
  1. SKYRIZI [Suspect]
     Active Substance: RISANKIZUMAB-RZAA
     Indication: Psoriasis
     Route: 058
     Dates: start: 20230308

REACTIONS (6)
  - Ovarian cyst [Recovered/Resolved]
  - Stress at work [Recovered/Resolved]
  - Large intestine benign neoplasm [Recovered/Resolved]
  - Hypertension [Recovering/Resolving]
  - Endometriosis [Unknown]
  - Weight increased [Unknown]

NARRATIVE: CASE EVENT DATE: 20230101
